FAERS Safety Report 5475847-3 (Version None)
Quarter: 2007Q4

REPORT INFORMATION
  Report Type: 
  Country: None (occurrence: None)
  Receive Date: 20071003
  Receipt Date: 20070924
  Transmission Date: 20080405
  Serious: Yes (Hospitalization)
  Sender: FDA-Public Use
  Company Number: RU-NOVOPROD-267800

PATIENT

DRUGS (1)
  1. NOVOLOG MIX 70/30 [Suspect]
     Indication: INSULIN-REQUIRING TYPE II DIABETES MELLITUS
     Dosage: 24 U, QD
     Route: 058
     Dates: start: 20070529, end: 20070703

REACTIONS (3)
  - HYPERGLYCAEMIA [None]
  - LIMB INJURY [None]
  - WOUND INFECTION [None]
